FAERS Safety Report 6941246-8 (Version None)
Quarter: 2010Q3

REPORT INFORMATION
  Report Type: 
  Country: None (occurrence: None)
  Receive Date: 20100825
  Receipt Date: 20100720
  Transmission Date: 20110219
  Serious: No
  Sender: FDA-Public Use
  Company Number: US-BRISTOL-MYERS SQUIBB COMPANY-15195381

PATIENT
  Age: 87 Year
  Sex: Male

DRUGS (5)
  1. ONGLYZA [Suspect]
     Dosage: THERAPY DURATION:1-2DAYS
     Route: 048
     Dates: start: 20100625
  2. GLUCOPHAGE [Concomitant]
  3. LASIX [Concomitant]
  4. ZOCOR [Concomitant]
  5. RAMIPRIL [Concomitant]

REACTIONS (2)
  - HAEMORRHOIDS [None]
  - PROSTATITIS [None]
